FAERS Safety Report 6739023-6 (Version None)
Quarter: 2010Q2

REPORT INFORMATION
  Report Type: 
  Country: None (occurrence: None)
  Receive Date: 20100524
  Receipt Date: 20100524
  Transmission Date: 20101027
  Serious: Yes (Hospitalization)
  Sender: FDA-Public Use
  Company Number: None

PATIENT
  Age: 73 Year
  Sex: Female
  Weight: 68.0396 kg

DRUGS (2)
  1. RITUXIMAB 1000 MG GENENTECH [Suspect]
     Indication: POLYMYOSITIS
     Dosage: 1000 MG X 2 DOSES 2 WEEKS APAR EVERY 6 MONTHS IV DRIP INTERMITENT DOSING
     Route: 041
     Dates: start: 20090701, end: 20090701
  2. RITUXIMAB 1000 MG GENENTECH [Suspect]
     Indication: POLYMYOSITIS
     Dosage: 1000 MG X 2 DOSES 2 WEEKS APAR EVERY 6 MONTHS IV DRIP INTERMITENT DOSING
     Route: 041
     Dates: start: 20100110, end: 20100110

REACTIONS (1)
  - PROGRESSIVE MULTIFOCAL LEUKOENCEPHALOPATHY [None]
